FAERS Safety Report 25315615 (Version 1)
Quarter: 2025Q2

REPORT INFORMATION
  Report Type: Report from Study
  Country: IN (occurrence: IN)
  Receive Date: 20250514
  Receipt Date: 20250514
  Transmission Date: 20250717
  Serious: Yes (Other)
  Sender: ALEXION PHARMACEUTICALS
  Company Number: IN-AstraZeneca-CH-00868489A

PATIENT
  Age: 73 Year
  Weight: 56 kg

DRUGS (1)
  1. OLAPARIB [Suspect]
     Active Substance: OLAPARIB

REACTIONS (8)
  - Neuralgia [Unknown]
  - Asthenia [Unknown]
  - Appetite disorder [Unknown]
  - Vomiting [Unknown]
  - Ageusia [Unknown]
  - Hepatic steatosis [Unknown]
  - Cholelithiasis [Unknown]
  - Sleep disorder [Unknown]
